FAERS Safety Report 8565264-1 (Version None)
Quarter: 2012Q3

REPORT INFORMATION
  Report Type: 
  Country: None (occurrence: None)
  Receive Date: 20120803
  Receipt Date: 20120724
  Transmission Date: 20120928
  Serious: Yes (Hospitalization)
  Sender: FDA-Public Use
  Company Number: GB-CELGENEUS-167-21880-12060391

PATIENT
  Sex: Female
  Weight: 47.6 kg

DRUGS (20)
  1. ANTI-THYMOCYTE GLOBULIN NOS [Suspect]
     Indication: MULTIPLE MYELOMA
     Route: 065
     Dates: start: 20120423, end: 20120425
  2. ASPIRIN [Concomitant]
     Indication: THROMBOSIS PROPHYLAXIS
     Dosage: 75 MILLIGRAM
     Route: 048
     Dates: start: 20120531
  3. METOCLOPRAMIDE [Concomitant]
     Indication: ANTIEMETIC SUPPORTIVE CARE
     Dosage: 30 MILLIGRAM
     Route: 048
     Dates: start: 20120423
  4. LANSOPRAZOLE [Concomitant]
     Indication: ANTACID THERAPY
     Dosage: 30 MILLIGRAM
     Route: 048
     Dates: start: 20120423
  5. URSODIOL [Concomitant]
     Indication: GRAFT VERSUS HOST DISEASE
     Dosage: 750 MILLIGRAM
     Route: 048
  6. DIAZEPAM [Concomitant]
     Indication: ANXIETY
     Route: 048
     Dates: start: 20120611
  7. REVLIMID [Suspect]
     Indication: MULTIPLE MYELOMA
     Dosage: 10 MILLIGRAM
     Route: 048
     Dates: start: 20120531, end: 20120614
  8. ACETAMINOPHEN [Concomitant]
     Indication: PAIN
     Route: 048
     Dates: start: 20120507
  9. ITRACONAZOLE [Concomitant]
     Indication: ANTIFUNGAL PROPHYLAXIS
     Dosage: 280 MILLIGRAM
     Route: 048
     Dates: start: 20120428
  10. URSODIOL [Concomitant]
     Indication: PROPHYLAXIS
     Route: 048
  11. CITALOPRAM HYDROBROMIDE [Concomitant]
     Indication: DEPRESSION
     Dosage: 40 MILLIGRAM
     Route: 048
     Dates: start: 20120426
  12. CODEINE [Concomitant]
     Indication: PAIN
     Route: 048
     Dates: start: 20120424
  13. SEPTRA [Concomitant]
     Indication: ANTIFUNGAL PROPHYLAXIS
     Dosage: 480 MILLIGRAM
     Route: 048
     Dates: start: 20120615
  14. LORAZEPAM [Concomitant]
     Indication: ANXIETY
     Route: 048
     Dates: start: 20120424
  15. FLUDARABINE PHOSPHATE [Suspect]
     Indication: MULTIPLE MYELOMA
     Route: 065
     Dates: start: 20120423, end: 20120425
  16. CYCLOSPORINE [Suspect]
     Indication: MULTIPLE MYELOMA
     Route: 065
     Dates: start: 20120606
  17. CYCLOSPORINE [Suspect]
     Dosage: 35 MILLIGRAM
     Route: 048
     Dates: start: 20120606
  18. ACYCLOVIR [Concomitant]
     Indication: ANTIVIRAL PROPHYLAXIS
     Dosage: 800 MILLIGRAM
     Route: 048
     Dates: start: 20120423
  19. CYCLOSPORINE [Suspect]
     Dosage: 50 MILLIGRAM
     Route: 048
     Dates: start: 20120511
  20. FOLIC ACID [Concomitant]
     Indication: SUPPLEMENTATION THERAPY
     Dosage: 5 MILLIGRAM
     Route: 048
     Dates: start: 20120423

REACTIONS (4)
  - ACUTE GRAFT VERSUS HOST DISEASE [None]
  - BLOOD CREATININE INCREASED [None]
  - NAUSEA [None]
  - ALANINE AMINOTRANSFERASE INCREASED [None]
